FAERS Safety Report 15084044 (Version 2)
Quarter: 2018Q3

REPORT INFORMATION
  Report Type: Spontaneous
  Country: US (occurrence: US)
  Receive Date: 20180628
  Receipt Date: 20180709
  Transmission Date: 20181010
  Serious: Yes (Disabling)
  Sender: FDA-Public Use
  Company Number: US-OTSUKA-2018_015699

PATIENT
  Sex: Male

DRUGS (2)
  1. ABILIFY [Suspect]
     Active Substance: ARIPIPRAZOLE
     Indication: MAJOR DEPRESSION
     Dosage: 2 MG, QD
     Route: 065
     Dates: start: 201108, end: 201504
  2. ABILIFY [Suspect]
     Active Substance: ARIPIPRAZOLE
     Indication: ATTENTION DEFICIT/HYPERACTIVITY DISORDER

REACTIONS (14)
  - Anhedonia [Unknown]
  - Emotional distress [Unknown]
  - Product use in unapproved indication [Unknown]
  - Economic problem [Unknown]
  - Social problem [Unknown]
  - Fear [Unknown]
  - Injury [Unknown]
  - Mental impairment [Unknown]
  - Pain [Unknown]
  - Anxiety [Unknown]
  - Disability [Unknown]
  - Gambling disorder [Recovered/Resolved]
  - Loss of employment [Unknown]
  - Personal relationship issue [Unknown]
